FAERS Safety Report 6716204-9 (Version None)
Quarter: 2010Q2

REPORT INFORMATION
  Report Type: 
  Country: None (occurrence: None)
  Receive Date: 20100426
  Receipt Date: 20091124
  Transmission Date: 20101027
  Serious: Yes (Hospitalization)
  Sender: FDA-Public Use
  Company Number: 2009BI032344

PATIENT
  Age: 56 Year
  Sex: Male

DRUGS (11)
  1. TYSABRI [Suspect]
     Indication: MULTIPLE SCLEROSIS
     Dosage: 300 MG;QM;IV
     Route: 042
     Dates: start: 20070703
  2. ALBUTEROL [Concomitant]
  3. ADVAIR DISKUS 100/50 [Concomitant]
  4. FLOMAX [Concomitant]
  5. NEURONTIN [Concomitant]
  6. LEXAPRO [Concomitant]
  7. SINGULAIR [Concomitant]
  8. MULTI-VITAMINS [Concomitant]
  9. BACLOFEN [Concomitant]
  10. PROTONIX [Concomitant]
  11. PROVIGIL [Concomitant]

REACTIONS (9)
  - ARTHRALGIA [None]
  - CHEST PAIN [None]
  - CHOLELITHIASIS [None]
  - DEMENTIA [None]
  - LIMB INJURY [None]
  - MEMORY IMPAIRMENT [None]
  - MENISCUS LESION [None]
  - PERONEAL NERVE PALSY [None]
  - SKIN LACERATION [None]
